FAERS Safety Report 11495157 (Version 2)
Quarter: 2015Q4

REPORT INFORMATION
  Report Type: Report from Study
  Country: US (occurrence: US)
  Receive Date: 20150911
  Receipt Date: 20151029
  Transmission Date: 20160304
  Serious: Yes (Disabling, Other)
  Sender: FDA-Public Use
  Company Number: US-BAYER-2015-182857

PATIENT
  Age: 42 Year
  Sex: Female
  Weight: 104.3 kg

DRUGS (2)
  1. STIVARGA [Suspect]
     Active Substance: REGORAFENIB
     Indication: COLON CANCER METASTATIC
     Dosage: 160 MG, QD
     Route: 048
     Dates: start: 20150402, end: 20150426
  2. STIVARGA [Suspect]
     Active Substance: REGORAFENIB
     Indication: COLON CANCER METASTATIC
     Dosage: 80 MG (FREQUENCY NOT REPORTED ON SOURCE DOCUMENT)
     Route: 048
     Dates: start: 20150506

REACTIONS (16)
  - Postoperative wound complication [None]
  - Pain in extremity [Recovering/Resolving]
  - Drug ineffective [None]
  - Palmar-plantar erythrodysaesthesia syndrome [Recovering/Resolving]
  - Hypoaesthesia [Recovered/Resolved]
  - Colon cancer stage IV [None]
  - Erythema [Recovering/Resolving]
  - Metastases to liver [None]
  - Blister [None]
  - Metastases to lung [None]
  - Skin toxicity [None]
  - Blister [Recovering/Resolving]
  - Paraesthesia [Recovered/Resolved]
  - Wound [None]
  - Fatigue [Not Recovered/Not Resolved]
  - Metastases to abdominal cavity [None]

NARRATIVE: CASE EVENT DATE: 201504
